FAERS Safety Report 4449326-6 (Version None)
Quarter: 2004Q3

REPORT INFORMATION
  Report Type: 
  Country: None (occurrence: None)
  Receive Date: 20040913
  Receipt Date: 20040826
  Transmission Date: 20050211
  Serious: Yes (Hospitalization)
  Sender: FDA-Public Use
  Company Number: CERZ-10651

PATIENT
  Age: 22 Year
  Sex: Female

DRUGS (2)
  1. CEREZYME [Suspect]
     Indication: GAUCHER'S DISEASE
     Dosage: 460 UNITS Q2WKS IV
     Route: 042
     Dates: start: 20031222, end: 20040401
  2. CEREZYME [Suspect]
     Indication: GAUCHER'S DISEASE
     Dates: start: 19980801, end: 20031031

REACTIONS (6)
  - ABORTION INDUCED [None]
  - ABORTION SPONTANEOUS [None]
  - CHOLELITHIASIS [None]
  - DRUG EXPOSURE DURING PREGNANCY [None]
  - ECTOPIC PREGNANCY [None]
  - TREATMENT NONCOMPLIANCE [None]
